FAERS Safety Report 7031579-1 (Version None)
Quarter: 2010Q4

REPORT INFORMATION
  Report Type: 
  Country: None (occurrence: None)
  Receive Date: 20101006
  Receipt Date: 20101006
  Transmission Date: 20110411
  Serious: No
  Sender: FDA-Public Use
  Company Number: None

PATIENT
  Age: 73 Year
  Sex: Female

DRUGS (5)
  1. SUMATRIPTAN SUCCINATE [Suspect]
     Indication: MIGRAINE
     Dosage: USE AS DIRECTED 1 INJECTION EVERY 12 HOURS AS NEEDED
     Dates: start: 20100301
  2. ZETIA [Concomitant]
  3. BUTALBITAL ACETAMINOPHEN AND CAFFEINE [Concomitant]
  4. LOPRESSOR [Concomitant]
  5. ALPRAZOLAM [Concomitant]

REACTIONS (3)
  - DRUG INEFFECTIVE [None]
  - PRODUCT PACKAGING QUANTITY ISSUE [None]
  - PRODUCT SUBSTITUTION ISSUE [None]
